FAERS Safety Report 7318379-X (Version None)
Quarter: 2011Q1

REPORT INFORMATION
  Report Type: 
  Country: None (occurrence: None)
  Receive Date: 20110218
  Receipt Date: 20110218
  Transmission Date: 20110831
  Serious: Yes (Hospitalization)
  Sender: FDA-Public Use
  Company Number: None

PATIENT
  Sex: Female
  Weight: 83.18 kg

DRUGS (4)
  1. BEVACIZUMAB (RHUMAB VEGF) [Suspect]
     Dosage: 844 MG
     Dates: end: 20110131
  2. OXALIPLATIN (ELOXATIN) [Suspect]
     Dosage: 154 MG
     Dates: end: 20110131
  3. FLUOROURACIL [Suspect]
     Dosage: 7180 MG
     Dates: end: 20110131
  4. LEUCOVORIN CALCIUM [Suspect]
     Dosage: 1536 MG
     Dates: end: 20110131

REACTIONS (9)
  - COUGH [None]
  - ABASIA [None]
  - PYREXIA [None]
  - ANXIETY [None]
  - HYPOKALAEMIA [None]
  - DIARRHOEA [None]
  - SPEECH DISORDER [None]
  - PNEUMONIA [None]
  - TRANSIENT ISCHAEMIC ATTACK [None]
